FAERS Safety Report 7328231-1 (Version None)
Quarter: 2011Q1

REPORT INFORMATION
  Report Type: 
  Country: None (occurrence: None)
  Receive Date: 20110224
  Receipt Date: 20110224
  Transmission Date: 20110831
  Serious: No
  Sender: FDA-Public Use
  Company Number: None

PATIENT
  Sex: Male
  Weight: 78.0187 kg

DRUGS (1)
  1. SUMATRIPTAN SUCCINATE [Suspect]
     Indication: MIGRAINE
     Dosage: 1 TAB PO MAY REPEAT AFTER 2 HOURS 2/DAY
     Route: 048
     Dates: start: 20100618

REACTIONS (1)
  - DRUG INEFFECTIVE [None]
